FAERS Safety Report 9248067 (Version 1)
Quarter: 2013Q2

REPORT INFORMATION
  Report Type: Spontaneous
  Country: US (occurrence: None)
  Receive Date: 20130419
  Receipt Date: 20130419
  Transmission Date: 20140414
  Serious: Yes (Hospitalization)
  Sender: FDA-Public Use
  Company Number: None

PATIENT
  Age: 93 Year
  Sex: Female

DRUGS (1)
  1. LINEZOLID [Suspect]
     Indication: WOUND INFECTION STAPHYLOCOCCAL
     Route: 048
     Dates: start: 20121223, end: 20130102

REACTIONS (3)
  - Syncope [None]
  - Loss of consciousness [None]
  - Thrombocytopenia [None]
